FAERS Safety Report 8244684-9 (Version None)
Quarter: 2012Q1

REPORT INFORMATION
  Report Type: 
  Country: None (occurrence: None)
  Receive Date: 20120329
  Receipt Date: 20120120
  Transmission Date: 20120608
  Serious: No
  Sender: FDA-Public Use
  Company Number: US-MYLANLABS-2012S1001804

PATIENT
  Age: 62 Year
  Sex: Female

DRUGS (6)
  1. VICODIN [Concomitant]
     Indication: BREAKTHROUGH PAIN
     Route: 048
  2. LITHIUM CARBONATE [Concomitant]
     Route: 048
  3. ZANAFLEX [Concomitant]
     Route: 048
  4. EFFEXOR [Concomitant]
     Route: 048
  5. FENTANYL-100 [Suspect]
     Indication: PAIN
     Dosage: Q3D
     Route: 062
  6. XANAX [Concomitant]
     Route: 048

REACTIONS (4)
  - WITHDRAWAL SYNDROME [None]
  - DRUG EFFECT DECREASED [None]
  - PAIN [None]
  - INAPPROPRIATE SCHEDULE OF DRUG ADMINISTRATION [None]
